FAERS Safety Report 7930158-9 (Version None)
Quarter: 2011Q4

REPORT INFORMATION
  Report Type: 
  Country: None (occurrence: None)
  Receive Date: 20111121
  Receipt Date: 20111024
  Transmission Date: 20120403
  Serious: No
  Sender: FDA-Public Use
  Company Number: US-BAYER-2011-103547

PATIENT
  Age: 16 Year
  Sex: Female

DRUGS (2)
  1. BEYAZ [Suspect]
     Indication: ABDOMINAL PAIN LOWER
  2. BEYAZ [Suspect]
     Indication: MENORRHAGIA

REACTIONS (2)
  - NAUSEA [None]
  - ABDOMINAL DISCOMFORT [None]
